FAERS Safety Report 8555023-8 (Version None)
Quarter: 2012Q3

REPORT INFORMATION
  Report Type: 
  Country: None (occurrence: None)
  Receive Date: 20120731
  Receipt Date: 20120112
  Transmission Date: 20120928
  Serious: Yes (Hospitalization)
  Sender: FDA-Public Use
  Company Number: US-ROCHE-1092969

PATIENT
  Sex: Female

DRUGS (2)
  1. XOLAIR [Suspect]
     Indication: ASTHMA
     Dates: start: 20050201
  2. PREDNISONE [Concomitant]
     Indication: PRODUCT USED FOR UNKNOWN INDICATION
     Dosage: 10 TO 40MGS FOR ABOUT A MONTH AT A TIME

REACTIONS (5)
  - WEIGHT INCREASED [None]
  - HOT FLUSH [None]
  - MOOD SWINGS [None]
  - INCREASED APPETITE [None]
  - MUSCLE SPASMS [None]
